FAERS Safety Report 9364681 (Version 1)
Quarter: 2013Q2

REPORT INFORMATION
  Report Type: Spontaneous
  Country: CA (occurrence: CA)
  Receive Date: 20130624
  Receipt Date: 20130624
  Transmission Date: 20140414
  Serious: No
  Sender: FDA-Public Use
  Company Number: CA-TEVA-412607USA

PATIENT
  Age: 20 Year
  Sex: Female

DRUGS (3)
  1. PLAN B ONE-STEP [Suspect]
     Indication: CONTRACEPTION
     Dosage: 2 PILLS (2X0.75MG)
     Route: 048
     Dates: start: 20130326, end: 20130326
  2. PLAN B ONE-STEP [Suspect]
     Dates: start: 20130410, end: 20130410
  3. TYLENOL [Concomitant]

REACTIONS (2)
  - Metrorrhagia [Recovered/Resolved]
  - Menstruation delayed [Not Recovered/Not Resolved]
